FAERS Safety Report 14167312 (Version 1)
Quarter: 2017Q4

REPORT INFORMATION
  Report Type: Spontaneous
  Country: US (occurrence: US)
  Receive Date: 20171107
  Receipt Date: 20171107
  Transmission Date: 20180321
  Serious: No
  Sender: FDA-Public Use
  Company Number: US-BAUSCH-BL-2017-017227

PATIENT
  Sex: Female
  Weight: 41.77 kg

DRUGS (1)
  1. UCERIS [Suspect]
     Active Substance: BUDESONIDE
     Indication: COLITIS MICROSCOPIC
     Route: 048
     Dates: start: 201703, end: 201705

REACTIONS (10)
  - Tremor [Unknown]
  - Bronchitis [Unknown]
  - Decreased appetite [Unknown]
  - Off label use [Recovered/Resolved]
  - Injury [Unknown]
  - Infection [Unknown]
  - Feeling jittery [Unknown]
  - Contusion [Unknown]
  - Somnambulism [Recovered/Resolved]
  - Palpitations [Unknown]

NARRATIVE: CASE EVENT DATE: 2017
